FAERS Safety Report 8806615 (Version 3)
Quarter: 2012Q4

REPORT INFORMATION
  Report Type: 
  Country: JO (occurrence: JO)
  Receive Date: 20120925
  Receipt Date: 20121004
  Transmission Date: 20130627
  Serious: Yes (Life-Threatening, Hospitalization)
  Sender: FDA-Public Use
  Company Number: LB-009507513-1209LBN008714

PATIENT
  Age: 56 Year
  Sex: Female
  Weight: 100 kg

DRUGS (5)
  1. ESMERON [Suspect]
     Indication: ANAESTHESIA
     Dosage: 50 mg as Injection and then 30 mg/h as continue (infusion)
     Dates: start: 20120910, end: 20120910
  2. BRIDION [Suspect]
     Indication: NEUROMUSCULAR BLOCKADE REVERSAL
     Dosage: 200 mg, Once
     Dates: start: 20120910, end: 20120910
  3. BRIDION [Suspect]
     Dosage: 400 mg, Once
     Dates: start: 20120910, end: 20120910
  4. FENTANYL [Concomitant]
     Dosage: 150 Microgram, UNK
     Dates: start: 20120910, end: 20120910
  5. REMIFENTANIL HYDROCHLORIDE [Concomitant]
     Dosage: 100 Microgram, qh
     Dates: start: 20120910, end: 20120910

REACTIONS (2)
  - Apnoea [Recovered/Resolved]
  - Recurrence of neuromuscular blockade [Recovered/Resolved]
